FAERS Safety Report 13302998 (Version 1)
Quarter: 2017Q1

REPORT INFORMATION
  Report Type: Spontaneous
  Country: IN (occurrence: IN)
  Receive Date: 20170307
  Receipt Date: 20170307
  Transmission Date: 20170428
  Serious: Yes (Hospitalization)
  Sender: FDA-Public Use
  Company Number: IN-TORRENT-00000950

PATIENT
  Age: 34 Year
  Sex: Female

DRUGS (4)
  1. CLOZAPINE. [Suspect]
     Active Substance: CLOZAPINE
  2. RISPERIDONE. [Suspect]
     Active Substance: RISPERIDONE
  3. FLUPHENAZINE DECANOATE. [Suspect]
     Active Substance: FLUPHENAZINE DECANOATE
  4. HALOPERIDOL. [Suspect]
     Active Substance: HALOPERIDOL

REACTIONS (3)
  - Initial insomnia [Unknown]
  - Restless legs syndrome [Recovered/Resolved]
  - Drug ineffective [Unknown]
